FAERS Safety Report 8770310 (Version 6)
Quarter: 2013Q1

REPORT INFORMATION
  Report Type: Spontaneous
  Country: US (occurrence: US)
  Receive Date: 20120906
  Receipt Date: 20130104
  Transmission Date: 20140127
  Serious: Yes (Hospitalization, Other)
  Sender: FDA-Public Use
  Company Number: US-009507513-1202USA00851

PATIENT
  Sex: 0

DRUGS (8)
  1. FOSAMAX [Suspect]
     Indication: OSTEOPOROSIS
     Dosage: 70 MG, UNK
     Route: 048
     Dates: start: 19980421
  2. FOSAMAX [Suspect]
     Dosage: UNK
     Route: 048
     Dates: start: 200507
  3. METHOTREXATE [Concomitant]
     Indication: RHEUMATOID ARTHRITIS
     Dosage: UNK
     Dates: start: 1993
  4. ENBREL [Concomitant]
     Indication: RHEUMATOID ARTHRITIS
     Dosage: UNK
     Dates: start: 1998
  5. MEDROL [Concomitant]
     Indication: RHEUMATOID ARTHRITIS
     Dosage: UNK
  6. FORTEO [Concomitant]
     Indication: OSTEOPOROSIS
  7. TRICOR (FENOFIBRATE) [Concomitant]
     Indication: BLOOD CHOLESTEROL INCREASED
     Dosage: UNK
     Dates: start: 1998
  8. FOSAMAX [Suspect]
     Route: 048

REACTIONS (47)
  - Intramedullary rod insertion [Unknown]
  - Femur fracture [Unknown]
  - Fall [Unknown]
  - Fall [Unknown]
  - Intramedullary rod insertion [Unknown]
  - Cardiac failure congestive [Unknown]
  - Shoulder arthroplasty [Unknown]
  - Spinal laminectomy [Unknown]
  - Spinal laminectomy [Unknown]
  - Anaemia [Unknown]
  - Arthrodesis [Unknown]
  - Femur fracture [Recovered/Resolved]
  - Intervertebral disc degeneration [Unknown]
  - Hiatus hernia [Unknown]
  - Poor quality sleep [Unknown]
  - Spondylolisthesis [Not Recovered/Not Resolved]
  - Bone lesion excision [Unknown]
  - Lumbar radiculopathy [Recovered/Resolved]
  - Cardiac valve disease [Unknown]
  - Sjogren^s syndrome [Unknown]
  - Oedema [Unknown]
  - Intervertebral disc disorder [Unknown]
  - Intervertebral disc protrusion [Unknown]
  - Depression [Not Recovered/Not Resolved]
  - Fall [Unknown]
  - Foot fracture [Unknown]
  - Arthropathy [Unknown]
  - Rotator cuff syndrome [Unknown]
  - Contusion [Unknown]
  - Rotator cuff syndrome [Unknown]
  - Muscle strain [Unknown]
  - Foot fracture [Unknown]
  - Fracture nonunion [Unknown]
  - Elbow operation [Unknown]
  - Spinal osteoarthritis [Unknown]
  - Osteoarthritis [Unknown]
  - Anxiety [Unknown]
  - Hypertension [Unknown]
  - Hyperlipidaemia [Unknown]
  - Arthralgia [Unknown]
  - Dyspepsia [Unknown]
  - Pain in extremity [Not Recovered/Not Resolved]
  - Pain in extremity [Unknown]
  - Drug ineffective [Unknown]
  - Gastrooesophageal reflux disease [Unknown]
  - Nausea [Unknown]
  - Arthralgia [Unknown]
